FAERS Safety Report 9698184 (Version 1)
Quarter: 2013Q4

REPORT INFORMATION
  Report Type: Report from Study
  Country: US (occurrence: US)
  Receive Date: 20131120
  Receipt Date: 20131120
  Transmission Date: 20140711
  Serious: Yes (Other)
  Sender: FDA-Public Use
  Company Number: US-ROCHE-1306083

PATIENT
  Sex: 0

DRUGS (4)
  1. AVASTIN [Suspect]
     Indication: LUNG NEOPLASM MALIGNANT
     Dosage: 6 CYCLES
     Route: 065
     Dates: start: 20110401
  2. AVASTIN [Suspect]
     Dosage: MAINTENANCE EVERY THREE WEEKS
     Route: 004
     Dates: start: 2012
  3. CDDP [Concomitant]
     Dosage: 6 CYCLE
     Route: 065
  4. ALIMTA [Concomitant]
     Dosage: 6 CYCLE
     Route: 065

REACTIONS (1)
  - Cardiac tamponade [Unknown]
